FAERS Safety Report 18505142 (Version 2)
Quarter: 2020Q4

REPORT INFORMATION
  Report Type: Other
  Country: CA (occurrence: CA)
  Receive Date: 20201116
  Receipt Date: 20201208
  Transmission Date: 20210114
  Serious: No
  Sender: FDA-Public Use
  Company Number: CA-ROCHE-2708191

PATIENT
  Sex: Female

DRUGS (8)
  1. OMEGA 3 [Concomitant]
     Active Substance: OMEGA-3 FATTY ACIDS
  2. DULOXETINE. [Concomitant]
     Active Substance: DULOXETINE
  3. MODAFINIL. [Concomitant]
     Active Substance: MODAFINIL
  4. PRAZOSIN. [Concomitant]
     Active Substance: PRAZOSIN
  5. OCREVUS [Suspect]
     Active Substance: OCRELIZUMAB
     Route: 042
  6. BUPROPION. [Concomitant]
     Active Substance: BUPROPION
  7. CETIRIZINE [Concomitant]
     Active Substance: CETIRIZINE HYDROCHLORIDE
  8. OCREVUS [Suspect]
     Active Substance: OCRELIZUMAB
     Indication: RELAPSING-REMITTING MULTIPLE SCLEROSIS
     Dosage: 300 MG AT DAY 0 AND 14, THEN 600 MG EVERY 6 MONTH
     Route: 042
     Dates: start: 20191018

REACTIONS (1)
  - Suspected COVID-19 [Unknown]
